FAERS Safety Report 9516794 (Version 3)
Quarter: 2013Q4

REPORT INFORMATION
  Report Type: Spontaneous
  Country: US (occurrence: US)
  Receive Date: 20130911
  Receipt Date: 20131015
  Transmission Date: 20140711
  Serious: Yes (Other)
  Sender: FDA-Public Use
  Company Number: US-JNJFOC-20130902290

PATIENT
  Sex: Female

DRUGS (4)
  1. NUCYNTA ER [Suspect]
     Indication: FIBROMYALGIA
     Dosage: 2 PER DAY
     Route: 048
     Dates: start: 2011, end: 2013
  2. NUCYNTA [Suspect]
     Indication: FIBROMYALGIA
     Dosage: 4 PER DAY
     Route: 048
     Dates: start: 2011, end: 2013
  3. NUCYNTA [Suspect]
     Indication: FIBROMYALGIA
     Dosage: 6 PER DAY
     Route: 048
     Dates: start: 2013
  4. BACLOFEN [Concomitant]
     Indication: FIBROMYALGIA
     Route: 065
     Dates: start: 2011

REACTIONS (6)
  - Suicidal ideation [Not Recovered/Not Resolved]
  - Depression [Not Recovered/Not Resolved]
  - Bedridden [Not Recovered/Not Resolved]
  - Drug dose omission [Unknown]
  - Weight decreased [Not Recovered/Not Resolved]
  - Drug ineffective [Not Recovered/Not Resolved]
